FAERS Safety Report 7867591-X (Version None)
Quarter: 2011Q4

REPORT INFORMATION
  Report Type: 
  Country: None (occurrence: None)
  Receive Date: 20111028
  Receipt Date: 20111021
  Transmission Date: 20120403
  Serious: Yes (Hospitalization)
  Sender: FDA-Public Use
  Company Number: DE-CEPHALON-2011004770

PATIENT
  Sex: Male
  Weight: 57 kg

DRUGS (10)
  1. SPIRIVA [Concomitant]
  2. BENDAMUSTINE HCL [Suspect]
     Indication: CHRONIC LYMPHOCYTIC LEUKAEMIA
     Route: 042
     Dates: start: 20110513, end: 20110713
  3. TROMCARDIN [Concomitant]
  4. NEBIVOLOL HCL [Concomitant]
  5. FALITHROM [Concomitant]
  6. DOXEPIN [Concomitant]
  7. AMIOHEXAL [Concomitant]
     Dates: end: 20110801
  8. SIMVASTATIN [Concomitant]
  9. TORSEMIDE [Concomitant]
  10. RAMIPRIL [Concomitant]

REACTIONS (7)
  - DYSPNOEA [None]
  - HYPERTENSION [None]
  - WEIGHT DECREASED [None]
  - TACHYCARDIA [None]
  - GENERAL PHYSICAL HEALTH DETERIORATION [None]
  - DECREASED APPETITE [None]
  - ASTHENIA [None]
